FAERS Safety Report 13313906 (Version 3)
Quarter: 2017Q2

REPORT INFORMATION
  Report Type: Report from Study
  Country: JP (occurrence: JP)
  Receive Date: 20170309
  Receipt Date: 20170530
  Transmission Date: 20170830
  Serious: Yes (Other)
  Sender: FDA-Public Use
  Company Number: JP-JNJFOC-20170303137

PATIENT

DRUGS (4)
  1. INFLIXIMAB, RECOMBINANT [Suspect]
     Active Substance: INFLIXIMAB
     Indication: RHEUMATOID ARTHRITIS
     Dosage: 200-300 MG
     Route: 042
  2. METHOTREXATE. [Suspect]
     Active Substance: METHOTREXATE
     Indication: RHEUMATOID ARTHRITIS
     Route: 065
  3. ETANERCEPT [Suspect]
     Active Substance: ETANERCEPT
     Indication: RHEUMATOID ARTHRITIS
     Route: 065
  4. GOLIMUMAB [Suspect]
     Active Substance: GOLIMUMAB
     Indication: RHEUMATOID ARTHRITIS
     Route: 058

REACTIONS (11)
  - Infusion related reaction [Unknown]
  - Conjunctivitis [Unknown]
  - Laboratory test abnormal [Unknown]
  - Viral upper respiratory tract infection [Unknown]
  - Vertigo [Unknown]
  - Paronychia [Unknown]
  - Eczema [Unknown]
  - Product use issue [Unknown]
  - Off label use [Unknown]
  - Infection [Unknown]
  - Oesophageal ulcer [Unknown]
